FAERS Safety Report 12381051 (Version 1)
Quarter: 2016Q2

REPORT INFORMATION
  Report Type: Spontaneous
  Country: US (occurrence: None)
  Receive Date: 20160517
  Receipt Date: 20160517
  Transmission Date: 20160815
  Serious: Yes (Disabling)
  Sender: FDA-Public Use
  Company Number: None

PATIENT
  Age: 61 Year
  Sex: Female
  Weight: 59.88 kg

DRUGS (6)
  1. CLONAZEPAM. [Suspect]
     Active Substance: CLONAZEPAM
     Indication: ANXIETY
     Dosage: 1 MG 3 PILLS AT NIGHT DAILY 1 MOUTH
     Route: 048
     Dates: start: 19970606
  2. ROSUVATATIN [Concomitant]
  3. DIPHENHYDRAMINE HCL [Concomitant]
     Active Substance: DIPHENHYDRAMINE HYDROCHLORIDE
  4. DOCUSATPNG [Concomitant]
  5. CALCIUM [Concomitant]
     Active Substance: CALCIUM
  6. AMITRIPTYLINE HCL [Concomitant]
     Active Substance: AMITRIPTYLINE

REACTIONS (5)
  - Cerebrovascular accident [None]
  - Blood pressure inadequately controlled [None]
  - Transient ischaemic attack [None]
  - Dementia [None]
  - Anxiety [None]

NARRATIVE: CASE EVENT DATE: 20160302
